FAERS Safety Report 8362805-4 (Version None)
Quarter: 2012Q2

REPORT INFORMATION
  Report Type: 
  Country: None (occurrence: None)
  Receive Date: 20120516
  Receipt Date: 20120510
  Transmission Date: 20120825
  Serious: Yes (Hospitalization, Other)
  Sender: FDA-Public Use
  Company Number: PHHY2012NL040625

PATIENT
  Sex: Male

DRUGS (12)
  1. LOSARTAN POTASSIUM [Concomitant]
     Dosage: 100 MG, ONE DAILY DOSE
  2. ZOMETA [Suspect]
     Indication: PROSTATE CANCER METASTATIC
     Dosage: 4 MG/5ML, 1X PER 28 DAYS
     Dates: start: 20100801
  3. METOPROLOL TARTRATE [Concomitant]
     Dosage: 100 MG, (ONCE 50MG IN THE MORNING, ONCE 50MG IN THE EVENING)
  4. CASODEX [Concomitant]
     Dosage: 50 MG, EVERY OTHER DAY
  5. LEUPROLIDE ACETATE [Concomitant]
     Dosage: 11.25 MG, ONCE EVERY 3 MONTHS
     Route: 058
  6. ZOMETA [Suspect]
     Dosage: 4 MG/5ML, 1X PER 28 DAYS
     Dates: start: 20110930
  7. PANTOPRAZOLE [Concomitant]
     Indication: PROPHYLAXIS
     Dosage: 40 MG, ONE DAILY DOSE
  8. CASODEX [Concomitant]
     Dosage: 150 MG, ONCE DAILY
  9. CALCIUM CARBONATE [Concomitant]
     Indication: PROPHYLAXIS
     Dosage: 500/400 IE
  10. ZOMETA [Suspect]
     Dosage: 4 MG/5ML, 1X PER 28 DAYS
     Dates: start: 20101222
  11. ZOMETA [Suspect]
     Dosage: 4 MG/5ML, 1X PER 28 DAYS
     Dates: start: 20111028
  12. PREDNISONE [Concomitant]
     Dosage: 10 MG (2DD5MG)

REACTIONS (19)
  - PROSTATE CANCER [None]
  - DYSPNOEA [None]
  - RENAL CYST [None]
  - DIVERTICULUM INTESTINAL [None]
  - NEOPLASM PROGRESSION [None]
  - METASTASES TO BONE [None]
  - SPLENOMEGALY [None]
  - SEPSIS [None]
  - NEOPLASM MALIGNANT [None]
  - CARDIAC ASTHMA [None]
  - TACHYPNOEA [None]
  - PROSTATIC SPECIFIC ANTIGEN INCREASED [None]
  - ENDOCARDITIS [None]
  - CARDIAC FAILURE [None]
  - CYST [None]
  - PLEURAL EFFUSION [None]
  - CARDIAC DISORDER [None]
  - RIB DEFORMITY [None]
  - MITRAL VALVE DISEASE [None]
